FAERS Safety Report 8506270 (Version 3)
Quarter: 2013Q1

REPORT INFORMATION
  Report Type: Spontaneous
  Country: US (occurrence: US)
  Receive Date: 20120412
  Receipt Date: 20130123
  Transmission Date: 20140127
  Serious: No
  Sender: FDA-Public Use
  Company Number: US-PFIZER INC-2012090407

PATIENT
  Age: 42 Year
  Sex: Female
  Weight: 87.53 kg

DRUGS (15)
  1. LYRICA [Suspect]
     Indication: FIBROMYALGIA
     Dosage: 75 MG, 3X/DAY
     Route: 048
     Dates: start: 20110706, end: 201208
  2. FOLIC ACID [Concomitant]
     Dosage: 1 MG TABS, 2 TABLETS DAILY
     Route: 048
  3. METHOTREXATE [Concomitant]
     Indication: RHEUMATIC DISORDER
     Dosage: 2.5 MG TABS, 10 TABLETS EVERY WEEK
  4. IBUPROFEN [Concomitant]
     Indication: INFLAMMATION
     Dosage: 800 MG, AS NEEDED
     Dates: start: 2009
  5. IBUPROFEN [Concomitant]
     Dosage: 800 MG, 3X/DAY
     Route: 048
  6. TYLENOL W/CODEINE NO. 3 [Concomitant]
     Indication: PAIN
     Dosage: 300-30 MG TABS, TAKE 1-2 TABLETS EVERY 4 TO 6 HRS AS NEEDED
     Dates: start: 2009
  7. TYLENOL W/CODEINE NO. 3 [Concomitant]
     Indication: MUSCULOSKELETAL STIFFNESS
  8. FEMARA [Concomitant]
     Dosage: UNK
  9. TOPAMAX [Concomitant]
     Dosage: 25 MG, 2 TABLETS AT BEDTIME AND 2 IN THE MORNING
  10. HUMIRA [Concomitant]
     Dosage: UNK, INJECT TWICE MONTHLY
     Route: 058
  11. CELEXA [Concomitant]
     Dosage: 40 MG, 1 TABLET DAILY
  12. FISH OIL [Concomitant]
     Dosage: 1000 MG, 1 CAPSULE TWICE DAILY
  13. AMBIEN [Concomitant]
     Dosage: 10 MG, 1 TABLET AT BEDTIME
     Route: 048
  14. NORCO [Concomitant]
     Indication: PAIN
     Dosage: 5-325 MG TABS, TAKE ONE AS NEEDED, NO MORE THAN FOUR A DAY.
  15. ZOMIG [Concomitant]
     Dosage: 5 MG TABS, 1 TIME ONLY

REACTIONS (2)
  - Pain [Not Recovered/Not Resolved]
  - Discomfort [Not Recovered/Not Resolved]
